FAERS Safety Report 6161029-9 (Version None)
Quarter: 2009Q2

REPORT INFORMATION
  Report Type: 
  Country: None (occurrence: None)
  Receive Date: 20090420
  Receipt Date: 20090408
  Transmission Date: 20091009
  Serious: Yes (Hospitalization)
  Sender: FDA-Public Use
  Company Number: FR-PFIZER INC-2009194810

PATIENT

DRUGS (3)
  1. XANAX [Suspect]
     Dosage: UNK
     Route: 048
     Dates: start: 20090323, end: 20090323
  2. TERCIAN [Suspect]
     Dosage: UNK
     Route: 048
     Dates: start: 20090323, end: 20090323
  3. SPASFON [Suspect]
     Dosage: UNK DF, 1X/DAY
     Route: 048
     Dates: start: 20090323, end: 20090323

REACTIONS (1)
  - COMA [None]
